FAERS Safety Report 8556411-6 (Version None)
Quarter: 2012Q3

REPORT INFORMATION
  Report Type: 
  Country: None (occurrence: None)
  Receive Date: 20120801
  Receipt Date: 20120725
  Transmission Date: 20120928
  Serious: Yes (Death)
  Sender: FDA-Public Use
  Company Number: PHHY2012US065103

PATIENT
  Age: 30 Year
  Sex: Female

DRUGS (2)
  1. PHENOBARBITAL TAB [Suspect]
  2. CARBAMAZEPINE [Suspect]

REACTIONS (1)
  - SUDDEN UNEXPLAINED DEATH IN EPILEPSY [None]
